FAERS Safety Report 13832142 (Version 1)
Quarter: 2017Q3

REPORT INFORMATION
  Report Type: Spontaneous
  Country: US (occurrence: US)
  Receive Date: 20170803
  Receipt Date: 20170803
  Transmission Date: 20171127
  Serious: No
  Sender: FDA-Public Use
  Company Number: US-ROCHE-697929

PATIENT
  Age: 75 Year
  Sex: Female
  Weight: 61.5 kg

DRUGS (8)
  1. ZYRTEC [Concomitant]
     Active Substance: CETIRIZINE HYDROCHLORIDE
     Route: 065
  2. ASPIRIN. [Concomitant]
     Active Substance: ASPIRIN
     Dosage: DRUG: BABY ASPIRIN
     Route: 065
  3. AMBIEN [Concomitant]
     Active Substance: ZOLPIDEM TARTRATE
     Route: 065
  4. ISOSORBIDE MONONITRATE. [Concomitant]
     Active Substance: ISOSORBIDE MONONITRATE
     Route: 065
  5. BONIVA [Suspect]
     Active Substance: IBANDRONATE SODIUM
     Indication: OSTEOPENIA
     Route: 048
     Dates: start: 201001, end: 20100323
  6. PRAVASTATIN. [Concomitant]
     Active Substance: PRAVASTATIN
     Route: 065
  7. DIOVAN [Concomitant]
     Active Substance: VALSARTAN
     Route: 065
  8. ESTRACE [Concomitant]
     Active Substance: ESTRADIOL
     Route: 065

REACTIONS (2)
  - Back pain [Recovered/Resolved]
  - Limb mass [Recovered/Resolved]
